FAERS Safety Report 5072716-8 (Version None)
Quarter: 2006Q3

REPORT INFORMATION
  Report Type: 
  Country: None (occurrence: None)
  Receive Date: 20060801
  Receipt Date: 20060721
  Transmission Date: 20061208
  Serious: Yes (Hospitalization, Other)
  Sender: FDA-Public Use
  Company Number: 2006AL000943

PATIENT
  Age: 54 Year
  Sex: Male
  Weight: 95.2554 kg

DRUGS (15)
  1. OXYCODONE + ACETAMINOPHEN [Suspect]
     Indication: PAIN
     Dates: start: 20050201
  2. OXYCODONE HCL [Suspect]
     Indication: PAIN
     Dosage: 60 MG; QD; PO
     Route: 048
     Dates: start: 20051027
  3. ORAVESCENT FENTANYL CITRATE [Suspect]
     Indication: BREAKTHROUGH PAIN
     Dosage: 800 UG; PRN; BUCC
     Route: 002
     Dates: start: 20051230, end: 20060219
  4. PROPOXYPHENE WITH ACETAMINOPHEN [Concomitant]
  5. MELOXICAM [Concomitant]
  6. ATORVASTATIN CALCIUM [Concomitant]
  7. GLYBURIDE [Concomitant]
  8. ASPIRIN [Concomitant]
  9. CLOPIDOGREL [Concomitant]
  10. METOPROLOL TARTRATE [Concomitant]
  11. NIACIN [Concomitant]
  12. LOVASTATIN [Concomitant]
  13. NITROPASTE [Concomitant]
  14. TRIAMTERENE AND HYDROCHLOROTHIAZIDE [Concomitant]
  15. SERTRALINE [Concomitant]

REACTIONS (9)
  - ACCIDENTAL OVERDOSE [None]
  - ANION GAP DECREASED [None]
  - DRUG WITHDRAWAL SYNDROME [None]
  - DYSPEPSIA [None]
  - HAEMATOCRIT DECREASED [None]
  - HAEMOGLOBIN DECREASED [None]
  - LOSS OF CONSCIOUSNESS [None]
  - RESPIRATORY DISTRESS [None]
  - VOMITING [None]
